FAERS Safety Report 11422326 (Version 2)
Quarter: 2015Q4

REPORT INFORMATION
  Report Type: Report from Study
  Country: US (occurrence: US)
  Receive Date: 20150827
  Receipt Date: 20151218
  Transmission Date: 20160304
  Serious: Yes (Other)
  Sender: FDA-Public Use
  Company Number: US-AMGEN-USASP2015086331

PATIENT
  Age: 63 Year
  Sex: Female

DRUGS (1)
  1. NPLATE [Suspect]
     Active Substance: ROMIPLOSTIM
     Indication: IMMUNE THROMBOCYTOPENIC PURPURA
     Dosage: 9 OR10 MUG/KG, Q2WK
     Route: 065
     Dates: start: 201206

REACTIONS (9)
  - Platelet count abnormal [Not Recovered/Not Resolved]
  - Urine output increased [Unknown]
  - Influenza like illness [Unknown]
  - Fatigue [Unknown]
  - Pain [Unknown]
  - Decreased appetite [Unknown]
  - Escherichia urinary tract infection [Unknown]
  - Incorrect dose administered [Unknown]
  - Neuropathy peripheral [Unknown]

NARRATIVE: CASE EVENT DATE: 201508
